FAERS Safety Report 8344955-1 (Version None)
Quarter: 2012Q2

REPORT INFORMATION
  Report Type: 
  Country: None (occurrence: None)
  Receive Date: 20120508
  Receipt Date: 20120502
  Transmission Date: 20120825
  Serious: Yes (Hospitalization, Disabling, Other)
  Sender: FDA-Public Use
  Company Number: US-MERCK-1111USA03242

PATIENT
  Age: 78 Year
  Sex: Female

DRUGS (2)
  1. FOSAMAX [Suspect]
     Indication: OSTEOPOROSIS
     Route: 048
     Dates: start: 19970730
  2. FOSAMAX [Suspect]
     Route: 048

REACTIONS (24)
  - FAT EMBOLISM [None]
  - RENAL IMPAIRMENT [None]
  - HYPOTHYROIDISM [None]
  - THROMBOCYTOPENIA [None]
  - PRERENAL FAILURE [None]
  - IRON DEFICIENCY ANAEMIA [None]
  - FEMUR FRACTURE [None]
  - POST PROCEDURAL HAEMORRHAGE [None]
  - HYPERTENSION [None]
  - ATELECTASIS [None]
  - BUNION [None]
  - ANAEMIA POSTOPERATIVE [None]
  - BLADDER DISORDER [None]
  - HYPOXIA [None]
  - FALL [None]
  - HEPATITIS C [None]
  - HYPOKALAEMIA [None]
  - RENAL FAILURE CHRONIC [None]
  - HYPOTENSION [None]
  - UTERINE DISORDER [None]
  - CARDIAC DISORDER [None]
  - LIVER FUNCTION TEST ABNORMAL [None]
  - EPISTAXIS [None]
  - OSTEOARTHRITIS [None]
